FAERS Safety Report 14190510 (Version 1)
Quarter: 2017Q4

REPORT INFORMATION
  Report Type: Spontaneous
  Country: DE (occurrence: DE)
  Receive Date: 20171115
  Receipt Date: 20171115
  Transmission Date: 20180321
  Serious: Yes (Other)
  Sender: FDA-Public Use
  Company Number: PHHY2017DE165491

PATIENT
  Sex: Female

DRUGS (3)
  1. LETROZOL [Suspect]
     Active Substance: LETROZOLE
     Indication: PRODUCT USED FOR UNKNOWN INDICATION
     Route: 065
  2. IBRANCE [Suspect]
     Active Substance: PALBOCICLIB
     Indication: BREAST CANCER METASTATIC
     Route: 065
  3. AFINITOR [Suspect]
     Active Substance: EVEROLIMUS
     Indication: BREAST CANCER METASTATIC
     Route: 065

REACTIONS (19)
  - Hypoaesthesia [Unknown]
  - Drug ineffective [Unknown]
  - White blood cell count decreased [Unknown]
  - Polyneuropathy [Unknown]
  - Feeding disorder [Unknown]
  - Stomatitis [Unknown]
  - Headache [Unknown]
  - Decreased appetite [Unknown]
  - Rhinorrhoea [Unknown]
  - Neutrophil count abnormal [Unknown]
  - Dysphagia [Unknown]
  - Malaise [Unknown]
  - Oropharyngeal pain [Unknown]
  - Urinary tract infection [Unknown]
  - Platelet count decreased [Unknown]
  - Dyspnoea [Unknown]
  - Skin disorder [Unknown]
  - Dizziness [Unknown]
  - Aphthous ulcer [Unknown]
